FAERS Safety Report 4687996-8 (Version None)
Quarter: 2005Q2

REPORT INFORMATION
  Report Type: 
  Country: None (occurrence: None)
  Receive Date: 20050610
  Receipt Date: 20050606
  Transmission Date: 20051028
  Serious: Yes (Other)
  Sender: FDA-Public Use
  Company Number: A0561491A

PATIENT
  Age: 62 Year
  Sex: Male

DRUGS (4)
  1. TOSITUMOMAB [Suspect]
     Indication: NON-HODGKIN'S LYMPHOMA
     Dosage: 450MG SINGLE DOSE
     Dates: start: 20000809, end: 20000809
  2. IODINE I 131 TOSITUMOMAB [Suspect]
     Indication: NON-HODGKIN'S LYMPHOMA
     Dosage: 5MCI SINGLE DOSE
     Route: 042
     Dates: start: 20000809, end: 20000809
  3. TOSITUMOMAB [Suspect]
     Dosage: 450MG SINGLE DOSE
     Route: 042
     Dates: start: 20000816, end: 20000816
  4. IODINE I 131 TOSITUMOMAB [Suspect]
     Dosage: 107.29MCI SINGLE DOSE
     Route: 042
     Dates: start: 20000816, end: 20000816

REACTIONS (1)
  - LUNG ADENOCARCINOMA [None]
